FAERS Safety Report 18829249 (Version 1)
Quarter: 2021Q1

REPORT INFORMATION
  Report Type: Spontaneous
  Country: US (occurrence: US)
  Receive Date: 20210201
  Receipt Date: 20210201
  Transmission Date: 20210419
  Serious: No
  Sender: FDA-Public Use
  Company Number: US-ABBVIE-20K-163-3596958-00

PATIENT
  Age: 64 Year
  Sex: Male
  Weight: 90.8 kg

DRUGS (2)
  1. HUMIRA [Suspect]
     Active Substance: ADALIMUMAB
     Dosage: LOADING DOSE
     Route: 058
     Dates: start: 20201003, end: 20201003
  2. HUMIRA [Suspect]
     Active Substance: ADALIMUMAB
     Indication: CROHN^S DISEASE
     Dosage: INITIAL
     Route: 058
     Dates: start: 20200919, end: 2020

REACTIONS (4)
  - Needle issue [Unknown]
  - Injection site pain [Recovered/Resolved]
  - Incorrect dose administered [Unknown]
  - Delayed delivery [Recovered/Resolved]

NARRATIVE: CASE EVENT DATE: 20201003
